FAERS Safety Report 5108986-7 (Version None)
Quarter: 2006Q3

REPORT INFORMATION
  Report Type: 
  Country: None (occurrence: None)
  Receive Date: 20060918
  Receipt Date: 20060830
  Transmission Date: 20061208
  Serious: Yes (Hospitalization, Other)
  Sender: FDA-Public Use
  Company Number: US200608006862

PATIENT
  Age: 80 Year
  Sex: Female

DRUGS (2)
  1. HUMALOG [Suspect]
     Indication: DIABETES MELLITUS
     Dosage: PER SLIDING SCALE
  2. HUMULIN N [Suspect]
     Indication: DIABETES MELLITUS
     Dosage: 16 UNITS IN THE MORNING

REACTIONS (4)
  - ANKLE FRACTURE [None]
  - BLINDNESS UNILATERAL [None]
  - BLOOD GLUCOSE DECREASED [None]
  - LOSS OF CONSCIOUSNESS [None]
